FAERS Safety Report 4447755-8 (Version None)
Quarter: 2004Q3

REPORT INFORMATION
  Report Type: 
  Country: None (occurrence: None)
  Receive Date: 20040913
  Receipt Date: 20030424
  Transmission Date: 20050211
  Serious: Yes (Hospitalization, Other)
  Sender: FDA-Public Use
  Company Number: PHFR2003GB01809

PATIENT
  Age: 24 Year
  Sex: Male

DRUGS (4)
  1. CLOZARIL [Suspect]
     Indication: SCHIZOPHRENIA
     Route: 048
     Dates: start: 20040603
  2. CLOZARIL [Suspect]
     Dosage: 350MG/DAY
     Route: 048
     Dates: start: 20000925, end: 20030422
  3. BUSPIRONE [Concomitant]
     Dosage: 5 MG, BID
     Route: 048
  4. HYOSCINE HBR HYT [Concomitant]
     Dosage: 300UG/DAY
     Route: 048

REACTIONS (5)
  - ELECTROCARDIOGRAM QT CORRECTED INTERVAL PROLONGED [None]
  - PALPITATIONS [None]
  - SINUS TACHYCARDIA [None]
  - TORSADE DE POINTES [None]
  - VENTRICULAR EXTRASYSTOLES [None]
